FAERS Safety Report 25755942 (Version 1)
Quarter: 2025Q3

REPORT INFORMATION
  Report Type: Spontaneous
  Country: US (occurrence: None)
  Receive Date: 20250902
  Receipt Date: 20250902
  Transmission Date: 20251020
  Serious: Yes (Life-Threatening, Hospitalization)
  Sender: FDA-CTU
  Company Number: None

PATIENT
  Age: 55 Year
  Sex: Female
  Weight: 52.65 kg

DRUGS (6)
  1. AMOXICILLIN [Suspect]
     Active Substance: AMOXICILLIN
     Indication: Tooth infection
     Dosage: OTHER QUANTITY : 1 TABLET(S);?FREQUENCY : EVERY 8 HOURS;?
     Route: 048
     Dates: start: 20231221, end: 20240102
  2. RISEDRONATE SODIUM [Concomitant]
     Active Substance: RISEDRONATE SODIUM
  3. VITAMINS [Concomitant]
     Active Substance: VITAMINS
  4. b12 [Concomitant]
  5. DE3 [Concomitant]
  6. 1200 mg calcium [Concomitant]

REACTIONS (13)
  - Organ failure [None]
  - Blood pressure decreased [None]
  - Septic shock [None]
  - Bell^s palsy [None]
  - Clostridium difficile infection [None]
  - Alopecia [None]
  - Blood iron decreased [None]
  - Hypoaesthesia [None]
  - Hypoaesthesia [None]
  - Myalgia [None]
  - Influenza like illness [None]
  - Dizziness [None]
  - Disease complication [None]

NARRATIVE: CASE EVENT DATE: 20240102
